FAERS Safety Report 9305937 (Version 1)
Quarter: 2013Q2

REPORT INFORMATION
  Report Type: Spontaneous
  Country: US (occurrence: US)
  Receive Date: 20130523
  Receipt Date: 20130523
  Transmission Date: 20140414
  Serious: Yes (Other)
  Sender: FDA-Public Use
  Company Number: US-PFIZER INC-2013154183

PATIENT
  Age: 55 Year
  Sex: Female

DRUGS (3)
  1. RIFABUTIN [Suspect]
     Indication: TUBERCULOSIS
     Dosage: 150MG, 3 TIMES A WEEK
     Route: 048
  2. PYRAZINAMIDE [Concomitant]
     Indication: TUBERCULOSIS
     Dosage: 2500MG, 3 TIMES A WEEK
     Route: 048
  3. ETHAMBUTOL [Concomitant]
     Indication: TUBERCULOSIS
     Dosage: 1600MG, 3 TIMES A WEEK
     Route: 048

REACTIONS (1)
  - Lupus-like syndrome [Recovered/Resolved]
